FAERS Safety Report 18407702 (Version 2)
Quarter: 2020Q4

REPORT INFORMATION
  Report Type: Spontaneous
  Country: US (occurrence: US)
  Receive Date: 20201021
  Receipt Date: 20201021
  Transmission Date: 20210114
  Serious: Yes (Hospitalization)
  Sender: FDA-Public Use
  Company Number: US-BIOGEN-207267

PATIENT
  Age: 36 Year
  Sex: Male
  Weight: 79.45 kg

DRUGS (6)
  1. ZOLOFT [Concomitant]
     Active Substance: SERTRALINE HYDROCHLORIDE
     Indication: MULTIPLE SCLEROSIS
     Route: 065
  2. AVONEX [Suspect]
     Active Substance: INTERFERON BETA-1A
     Route: 030
     Dates: start: 20001103, end: 20080803
  3. AVONEX [Suspect]
     Active Substance: INTERFERON BETA-1A
     Indication: MULTIPLE SCLEROSIS
     Route: 030
     Dates: start: 1999, end: 2003
  4. AVONEX PEN [Suspect]
     Active Substance: INTERFERON BETA-1A
     Route: 030
     Dates: start: 20130429, end: 20170707
  5. AVONEX [Suspect]
     Active Substance: INTERFERON BETA-1A
     Indication: MULTIPLE SCLEROSIS
     Route: 030
     Dates: start: 2003
  6. AVONEX PEN [Suspect]
     Active Substance: INTERFERON BETA-1A
     Indication: MULTIPLE SCLEROSIS
     Route: 030
     Dates: start: 2003, end: 200509

REACTIONS (7)
  - Road traffic accident [Recovered/Resolved]
  - Mobility decreased [Not Recovered/Not Resolved]
  - Joint dislocation [Recovered/Resolved]
  - Osteomyelitis [Recovered/Resolved]
  - Staphylococcal infection [Recovered/Resolved]
  - Wound infection [Unknown]
  - Open fracture [Not Recovered/Not Resolved]

NARRATIVE: CASE EVENT DATE: 2004
